FAERS Safety Report 8975425 (Version 1)
Quarter: 2012Q4

REPORT INFORMATION
  Report Type: 
  Country: US (occurrence: US)
  Receive Date: 20121219
  Receipt Date: 20121219
  Transmission Date: 20130627
  Serious: No
  Sender: FDA-Public Use
  Company Number: US-PFIZER INC-2012318489

PATIENT

DRUGS (1)
  1. CELEBREX [Suspect]
     Indication: ACUTE PAIN
     Dosage: 200 mg, as needed
     Dates: start: 2012

REACTIONS (3)
  - Intentional drug misuse [Unknown]
  - Headache [Unknown]
  - Stress [Unknown]
